FAERS Safety Report 4977382-5 (Version None)
Quarter: 2006Q2

REPORT INFORMATION
  Report Type: 
  Country: None (occurrence: None)
  Receive Date: 20060412
  Receipt Date: 20060403
  Transmission Date: 20061013
  Serious: Yes (Disabling)
  Sender: FDA-Public Use
  Company Number: HQWYE613503APR06

PATIENT
  Age: 23 Year
  Sex: Female

DRUGS (7)
  1. PANTOPRAZOLE SODIUM [Suspect]
     Indication: GASTROOESOPHAGEAL REFLUX DISEASE
     Dosage: SEE IMAGE
     Route: 048
     Dates: start: 20050601, end: 20051201
  2. PANTOPRAZOLE SODIUM [Suspect]
     Indication: GASTROOESOPHAGEAL REFLUX DISEASE
     Dosage: SEE IMAGE
     Route: 048
     Dates: start: 20051201, end: 20060101
  3. DIANE (CYPROTERONE ACETATE/ETHINYLESTRADIOL, ) [Suspect]
     Indication: ACNE
     Dosage: 1 DOSAGE FORM 1X PER 1 DAY, ORAL
     Route: 048
     Dates: start: 20010101
  4. SINGULAIR [Concomitant]
  5. ZYRTEC [Concomitant]
  6. CELESTAMINE TAB [Concomitant]
  7. TREPILINE (AMITRIPTYLINE) [Concomitant]

REACTIONS (1)
  - FOOD ALLERGY [None]
